FAERS Safety Report 9833966 (Version 1)
Quarter: 2014Q1

REPORT INFORMATION
  Report Type: Spontaneous
  Country: US (occurrence: US)
  Receive Date: 20140122
  Receipt Date: 20140122
  Transmission Date: 20141002
  Serious: Yes (Hospitalization)
  Sender: FDA-Public Use
  Company Number: US-BRISTOL-MYERS SQUIBB COMPANY-20008413

PATIENT
  Sex: Male

DRUGS (5)
  1. BICNU [Suspect]
     Indication: T-CELL LYMPHOMA
  2. ETOPOSIDE [Suspect]
  3. CYTARABINE [Suspect]
  4. MELPHALAN [Suspect]
  5. ADCETRIS [Suspect]

REACTIONS (1)
  - Pneumonitis [Unknown]
